FAERS Safety Report 25496449 (Version 1)
Quarter: 2025Q2

REPORT INFORMATION
  Report Type: Spontaneous
  Country: ES (occurrence: ES)
  Receive Date: 20250630
  Receipt Date: 20250630
  Transmission Date: 20250717
  Serious: Yes (Death, Hospitalization)
  Sender: ABBVIE
  Company Number: None

PATIENT
  Age: 61 Year
  Sex: Female

DRUGS (5)
  1. VENETOCLAX [Suspect]
     Active Substance: VENETOCLAX
     Indication: Acute myeloid leukaemia
     Dosage: FORM STRENGTH: 100 MG
     Route: 048
     Dates: start: 20250312, end: 20250401
  2. ISAVUCONAZOLE [Suspect]
     Active Substance: ISAVUCONAZOLE
     Indication: Prophylaxis
     Dosage: FORM STRENGTH: 100 MG ?2 TABLETS OF 100MG
     Route: 048
     Dates: start: 20250130, end: 20250401
  3. XOSPATA [Concomitant]
     Active Substance: GILTERITINIB
     Indication: Acute myeloid leukaemia
     Dosage: FORM STRENGTH 40MG?80 MG (2 TABLETS OF 40 MG) AT 16:00 PM
     Route: 048
     Dates: start: 20250130, end: 20250428
  4. AMOXICILLIN\CLAVULANATE POTASSIUM [Suspect]
     Active Substance: AMOXICILLIN\CLAVULANATE POTASSIUM
     Indication: Pyrexia
     Dosage: FORM STRENGTH: 875 MG/125 MG
     Route: 048
     Dates: start: 20250325, end: 20250328
  5. MEROPENEM [Suspect]
     Active Substance: MEROPENEM
     Indication: Prophylaxis
     Dosage: 1 GRAM (1 VIAL) EVERY 8 HOURS?FORM STRENGTH:  1000 MG
     Route: 042
     Dates: start: 20250312, end: 20250328

REACTIONS (3)
  - Acute myeloid leukaemia [Fatal]
  - Hepatitis cholestatic [Not Recovered/Not Resolved]
  - Pneumonia [Fatal]

NARRATIVE: CASE EVENT DATE: 20250101
